FAERS Safety Report 7859774-X (Version None)
Quarter: 2011Q4

REPORT INFORMATION
  Report Type: 
  Country: None (occurrence: None)
  Receive Date: 20111027
  Receipt Date: 20111024
  Transmission Date: 20120403
  Serious: Yes (Death, Other)
  Sender: FDA-Public Use
  Company Number: JP-PFIZER INC-2011256161

PATIENT
  Age: 82 Year
  Sex: Male

DRUGS (1)
  1. UNASYN [Suspect]
     Dosage: UNK
     Dates: start: 20101101, end: 20101101

REACTIONS (2)
  - TOXIC EPIDERMAL NECROLYSIS [None]
  - PNEUMONIA [None]
